FAERS Safety Report 13454421 (Version 1)
Quarter: 2017Q2

REPORT INFORMATION
  Report Type: Spontaneous
  Country: US (occurrence: US)
  Receive Date: 20170418
  Receipt Date: 20170418
  Transmission Date: 20170830
  Serious: No
  Sender: FDA-Public Use
  Company Number: US-ALLERGAN-1704676US

PATIENT
  Age: 32 Year
  Sex: Female

DRUGS (2)
  1. VISINE                             /00256502/ [Concomitant]
     Indication: OCULAR HYPERAEMIA
     Dosage: UNK UNK, PRN
     Route: 047
  2. LATISSE [Suspect]
     Active Substance: BIMATOPROST
     Indication: GROWTH OF EYELASHES
     Dosage: 1 GTT, QHS,
     Route: 061
     Dates: start: 20170205

REACTIONS (5)
  - Eyelids pruritus [Not Recovered/Not Resolved]
  - Ocular hyperaemia [Not Recovered/Not Resolved]
  - Eyelid pain [Not Recovered/Not Resolved]
  - Eye swelling [Not Recovered/Not Resolved]
  - Expired product administered [Unknown]

NARRATIVE: CASE EVENT DATE: 20170205
